FAERS Safety Report 11409782 (Version 1)
Quarter: 2015Q3

REPORT INFORMATION
  Report Type: Spontaneous
  Country: HR (occurrence: HR)
  Receive Date: 20150824
  Receipt Date: 20150824
  Transmission Date: 20151125
  Serious: Yes (Life-Threatening, Hospitalization, Other)
  Sender: FDA-Public Use
  Company Number: HR-WATSON-2015-17353

PATIENT
  Age: 71 Year
  Sex: Female

DRUGS (6)
  1. SILDENAFIL (UNKNOWN) [Suspect]
     Active Substance: SILDENAFIL
     Indication: SKIN ULCER
     Dosage: 50 MG, TID
     Route: 048
     Dates: start: 20150615, end: 20150701
  2. DECORTIN [Concomitant]
     Active Substance: PREDNISONE
     Indication: SYSTEMIC SCLEROSIS
     Dosage: 5 MG, TID
     Route: 048
  3. IRUMED [Concomitant]
     Indication: PRODUCT USED FOR UNKNOWN INDICATION
     Dosage: UNK
     Route: 048
  4. MOVALIS [Concomitant]
     Active Substance: MELOXICAM
     Indication: SYSTEMIC SCLEROSIS
     Dosage: 15 MG, DAILY
     Route: 048
  5. CONTROLOC                          /01263204/ [Concomitant]
     Indication: CHRONIC GASTRITIS
     Dosage: 20 MG, DAILY
     Route: 048
  6. ZALDIAR [Concomitant]
     Active Substance: ACETAMINOPHEN\TRAMADOL HYDROCHLORIDE
     Indication: PRODUCT USED FOR UNKNOWN INDICATION
     Dosage: UNK
     Route: 048

REACTIONS (1)
  - Acute kidney injury [Not Recovered/Not Resolved]

NARRATIVE: CASE EVENT DATE: 20150630
